FAERS Safety Report 17042364 (Version 1)
Quarter: 2019Q4

REPORT INFORMATION
  Report Type: Spontaneous
  Country: US (occurrence: US)
  Receive Date: 20191118
  Receipt Date: 20191118
  Transmission Date: 20200122
  Serious: No
  Sender: FDA-Public Use
  Company Number: US-NVP-000034

PATIENT
  Age: 16 Year

DRUGS (2)
  1. SIROLIMUS. [Suspect]
     Active Substance: SIROLIMUS
     Indication: NECK DEFORMITY
     Route: 065
  2. SIROLIMUS. [Suspect]
     Active Substance: SIROLIMUS
     Indication: LIMB DEFORMITY
     Route: 065

REACTIONS (2)
  - Adverse drug reaction [Unknown]
  - Product use in unapproved indication [Unknown]
